FAERS Safety Report 19129664 (Version 1)
Quarter: 2021Q2

REPORT INFORMATION
  Report Type: Spontaneous
  Country: US (occurrence: US)
  Receive Date: 20210413
  Receipt Date: 20210413
  Transmission Date: 20210717
  Serious: No
  Sender: FDA-Public Use
  Company Number: US-TOPROL-202000080

PATIENT
  Age: 44 Year
  Sex: Male

DRUGS (4)
  1. ANORO [Suspect]
     Active Substance: UMECLIDINIUM BROMIDE\VILANTEROL TRIFENATATE
     Route: 055
     Dates: start: 202008
  2. TOPROL XL [Suspect]
     Active Substance: METOPROLOL SUCCINATE
     Dates: end: 202008
  3. BRILINTA [Suspect]
     Active Substance: TICAGRELOR
     Route: 048
     Dates: start: 201803
  4. LIPITOR [Suspect]
     Active Substance: ATORVASTATIN CALCIUM
     Route: 048

REACTIONS (7)
  - Dyspnoea [Unknown]
  - Product use in unapproved indication [Unknown]
  - Joint stiffness [Unknown]
  - Pain in extremity [Unknown]
  - Chest pain [Unknown]
  - Memory impairment [Unknown]
  - Arthralgia [Unknown]
